FAERS Safety Report 26180292 (Version 2)
Quarter: 2025Q4

REPORT INFORMATION
  Report Type: Report from Study
  Country: CA (occurrence: CA)
  Receive Date: 20251219
  Receipt Date: 20251223
  Transmission Date: 20260117
  Serious: Yes (Other)
  Sender: PFIZER
  Company Number: CA-PFIZER INC-202500245193

PATIENT
  Age: 62 Year
  Sex: Male

DRUGS (1)
  1. VYNDAMAX [Suspect]
     Active Substance: TAFAMIDIS
     Indication: Cardiac amyloidosis
     Dosage: 61 MG, 1X/DAY
     Route: 048
     Dates: start: 20250814

REACTIONS (1)
  - Cardiac failure chronic [Not Recovered/Not Resolved]
